FAERS Safety Report 20658547 (Version 1)
Quarter: 2022Q1

REPORT INFORMATION
  Report Type: Spontaneous
  Country: US (occurrence: None)
  Receive Date: 20220330
  Receipt Date: 20220330
  Transmission Date: 20220423
  Serious: Yes (Hospitalization)
  Sender: FDA-Public Use
  Company Number: None

PATIENT
  Age: 36 Year
  Sex: Female
  Weight: 60.75 kg

DRUGS (2)
  1. .DELTA.8-TETRAHYDROCANNABINOL\HERBALS [Suspect]
     Active Substance: .DELTA.8-TETRAHYDROCANNABINOL\HERBALS
     Indication: Product used for unknown indication
  2. VITAMINS [Concomitant]
     Active Substance: VITAMINS

REACTIONS (13)
  - Euphoric mood [None]
  - Dizziness [None]
  - Nausea [None]
  - Mobility decreased [None]
  - Heart rate increased [None]
  - Arrhythmia [None]
  - Hyponatraemia [None]
  - Tremor [None]
  - Pyrexia [None]
  - Fatigue [None]
  - Asthenia [None]
  - Sensorimotor disorder [None]
  - Laboratory test abnormal [None]

NARRATIVE: CASE EVENT DATE: 20220226
